FAERS Safety Report 20049850 (Version 1)
Quarter: 2021Q4

REPORT INFORMATION
  Report Type: Spontaneous
  Country: US (occurrence: None)
  Receive Date: 20211109
  Receipt Date: 20211109
  Transmission Date: 20220303
  Serious: No
  Sender: FDA-Public Use
  Company Number: 2021A781733

PATIENT
  Sex: Female
  Weight: 65.8 kg

DRUGS (3)
  1. FASLODEX [Suspect]
     Active Substance: FULVESTRANT
     Route: 030
  2. IBRANCE [Suspect]
     Active Substance: PALBOCICLIB
     Indication: Breast cancer female
     Route: 048
     Dates: start: 20210924
  3. FLUZONE QUAD [Concomitant]

REACTIONS (3)
  - Contusion [Unknown]
  - Hunger [Unknown]
  - Nausea [Unknown]
